FAERS Safety Report 18484579 (Version 10)
Quarter: 2022Q1

REPORT INFORMATION
  Report Type: Report from Study
  Country: DE (occurrence: DE)
  Receive Date: 20201110
  Receipt Date: 20220329
  Transmission Date: 20220424
  Serious: Yes (Hospitalization, Other)
  Sender: FDA-Public Use
  Company Number: PHHY2019DE182202

PATIENT
  Age: 68 Year
  Sex: Female

DRUGS (6)
  1. COSENTYX [Suspect]
     Active Substance: SECUKINUMAB
     Indication: Psoriatic arthropathy
     Dosage: 300 MG, QMO
     Route: 065
     Dates: start: 20171024, end: 20171120
  2. COSENTYX [Suspect]
     Active Substance: SECUKINUMAB
     Dosage: 300 MG, UNKNOWN
     Route: 065
     Dates: start: 20171121
  3. COSENTYX [Suspect]
     Active Substance: SECUKINUMAB
     Dosage: 300 MG, UNKNOWN
     Route: 065
  4. COSENTYX [Suspect]
     Active Substance: SECUKINUMAB
     Dosage: 300 MG, UNKNOWN
     Route: 065
  5. COSENTYX [Suspect]
     Active Substance: SECUKINUMAB
     Dosage: 300 MG, UNKNOWN
     Route: 058
  6. LEVOTHYROXINE SODIUM [Concomitant]
     Active Substance: LEVOTHYROXINE SODIUM
     Indication: Hypothyroidism
     Dosage: UNK UNK, QD
     Route: 065
     Dates: start: 1993, end: 20190708

REACTIONS (25)
  - Pneumonia [Recovered/Resolved]
  - Tooth abscess [Recovered/Resolved with Sequelae]
  - Pulmonary hypertension [Unknown]
  - Hyperthyroidism [Recovered/Resolved]
  - Gastrointestinal oedema [Recovered/Resolved]
  - Psoriatic arthropathy [Recovered/Resolved with Sequelae]
  - Pleurisy [Recovered/Resolved]
  - Viral infection [Recovered/Resolved]
  - Ear pain [Recovered/Resolved]
  - Subcutaneous abscess [Recovered/Resolved]
  - Bradypnoea [Unknown]
  - Subcutaneous abscess [Unknown]
  - Urinary tract infection [Recovered/Resolved]
  - Cholelithiasis [Unknown]
  - Abdominal pain [Recovered/Resolved]
  - Dry eye [Unknown]
  - Vomiting [Unknown]
  - Abdominal pain [Unknown]
  - Hypertension [Recovered/Resolved]
  - Diverticulum [Unknown]
  - Colon adenoma [Recovered/Resolved]
  - Nail psoriasis [Unknown]
  - Pyrexia [Unknown]
  - Vitamin D deficiency [Unknown]
  - Muscle spasms [Unknown]

NARRATIVE: CASE EVENT DATE: 20181201
